FAERS Safety Report 6070457-1 (Version None)
Quarter: 2009Q1

REPORT INFORMATION
  Report Type: 
  Country: None (occurrence: None)
  Receive Date: 20090204
  Receipt Date: 20090126
  Transmission Date: 20090719
  Serious: Yes (Other)
  Sender: FDA-Public Use
  Company Number: GXKR2009GB01173

PATIENT
  Weight: 0.8 kg

DRUGS (8)
  1. LABETALOL HCL [Suspect]
     Dosage: MATERNAL DOSE: 100 MG BID, TRANSPLACENTAL
     Route: 064
  2. HYDRALAZINE HCL [Concomitant]
  3. METHYLDOPA [Concomitant]
  4. ACETYLSALICYLIC ACID SRT [Concomitant]
  5. BETAMETHASONE [Concomitant]
  6. DALTEPARIN SODIUM [Concomitant]
  7. NIFEDIPINE [Concomitant]
  8. PHOSPHOLIPIDS (PHOSPHOLIPIDS) [Concomitant]

REACTIONS (6)
  - BLOOD LACTIC ACID INCREASED [None]
  - CAESAREAN SECTION [None]
  - FOETAL GROWTH RETARDATION [None]
  - HYPOGLYCAEMIA NEONATAL [None]
  - MATERNAL DRUGS AFFECTING FOETUS [None]
  - PREMATURE BABY [None]
